FAERS Safety Report 6308066-9 (Version None)
Quarter: 2009Q3

REPORT INFORMATION
  Report Type: 
  Country: None (occurrence: None)
  Receive Date: 20090813
  Receipt Date: 20090807
  Transmission Date: 20100115
  Serious: Yes (Life-Threatening)
  Sender: FDA-Public Use
  Company Number: B0587799A

PATIENT
  Sex: Female

DRUGS (5)
  1. AMOXICILLIN TRIHYDRATE [Suspect]
     Indication: BRONCHITIS
     Dosage: 1UNIT SINGLE DOSE
     Route: 048
     Dates: start: 20090201, end: 20090201
  2. CORTICOID [Concomitant]
     Route: 065
  3. LEVOTHYROX [Concomitant]
     Indication: HYPOTHYROIDISM
  4. LIPANTHYL [Concomitant]
  5. DEROXAT [Concomitant]
     Indication: DEPRESSION

REACTIONS (5)
  - ANAPHYLACTIC SHOCK [None]
  - LOSS OF CONSCIOUSNESS [None]
  - MALAISE [None]
  - PRURITUS GENERALISED [None]
  - SENSE OF OPPRESSION [None]
